FAERS Safety Report 5069648-8 (Version None)
Quarter: 2006Q3

REPORT INFORMATION
  Report Type: 
  Country: None (occurrence: None)
  Receive Date: 20060803
  Receipt Date: 20060724
  Transmission Date: 20061208
  Serious: Yes (Death, Life-Threatening, Hospitalization)
  Sender: FDA-Public Use
  Company Number: US-ROCHE-456705

PATIENT
  Weight: 98 kg

DRUGS (3)
  1. VESANOID [Suspect]
     Route: 048
     Dates: end: 20060724
  2. CARDIAC MEDICATIONS [Concomitant]
     Dosage: PATEINT REPORTED TO BE ON MULTIPLE CARDIAC MEDICATIONS.
  3. ANTIBIOTIC NOS [Concomitant]
     Dosage: PATIENET REPORTED TO BE ON MULTIPLE ANTI INFECTANTS.

REACTIONS (7)
  - BLOOD CULTURE POSITIVE [None]
  - DEATH [None]
  - ESCHERICHIA INFECTION [None]
  - INFECTION [None]
  - RENAL FAILURE [None]
  - SEPTIC SHOCK [None]
  - SPUTUM CULTURE POSITIVE [None]
